FAERS Safety Report 11830772 (Version 1)
Quarter: 2015Q4

REPORT INFORMATION
  Report Type: Spontaneous
  Country: US (occurrence: None)
  Receive Date: 20151211
  Receipt Date: 20151211
  Transmission Date: 20160305
  Serious: Yes (Death)
  Sender: FDA-Public Use
  Company Number: None

PATIENT
  Age: 84 Year
  Sex: Female

DRUGS (1)
  1. SENSIPAR [Suspect]
     Active Substance: CINACALCET HYDROCHLORIDE
     Indication: NEOPLASM
     Dosage: 30 MG, EVERY EVENING
     Route: 048
     Dates: start: 201308, end: 201511

REACTIONS (1)
  - Death [None]

NARRATIVE: CASE EVENT DATE: 20151209
